FAERS Safety Report 20728006 (Version 11)
Quarter: 2022Q4

REPORT INFORMATION
  Report Type: Spontaneous
  Country: US (occurrence: US)
  Receive Date: 20220419
  Receipt Date: 20221223
  Transmission Date: 20230113
  Serious: No
  Sender: FDA-Public Use
  Company Number: US-GLAXOSMITHKLINE-US2022AMR065608

PATIENT
  Age: 63 Year
  Sex: Female

DRUGS (9)
  1. ZEJULA [Suspect]
     Active Substance: NIRAPARIB
     Indication: Ovarian cancer
     Dosage: 300 MG, QD
     Route: 048
     Dates: start: 20220407, end: 20220415
  2. ZEJULA [Suspect]
     Active Substance: NIRAPARIB
     Dosage: 100 MG, QD
     Route: 048
     Dates: start: 20220601
  3. ZEJULA [Suspect]
     Active Substance: NIRAPARIB
     Dosage: 100 MG, QD (100 MG DAILY FOR 5 DAYS ON AND 2 DAYS OFF)
     Route: 048
     Dates: start: 20220725
  4. ZEJULA [Suspect]
     Active Substance: NIRAPARIB
     Dosage: 100 MG, QD
  5. ZEJULA [Suspect]
     Active Substance: NIRAPARIB
     Dosage: 100 MG CAPSULE (4-5 DAYS IN A WEEK)
     Dates: start: 20221005
  6. ZEJULA [Suspect]
     Active Substance: NIRAPARIB
     Dosage: 100 MG, QD
     Dates: start: 202210
  7. ZEJULA [Suspect]
     Active Substance: NIRAPARIB
     Dosage: 100 MG, QD
  8. AVASTIN [Suspect]
     Active Substance: BEVACIZUMAB
     Indication: Product used for unknown indication
     Dosage: UNK
  9. AMLODIPINE [Concomitant]
     Active Substance: AMLODIPINE BESYLATE
     Indication: Product used for unknown indication
     Dosage: UNK

REACTIONS (15)
  - Nausea [Not Recovered/Not Resolved]
  - Blood sodium decreased [Not Recovered/Not Resolved]
  - Platelet count decreased [Recovering/Resolving]
  - Red blood cell count decreased [Not Recovered/Not Resolved]
  - White blood cell count decreased [Not Recovered/Not Resolved]
  - Arthralgia [Not Recovered/Not Resolved]
  - Full blood count abnormal [Not Recovered/Not Resolved]
  - Blood test abnormal [Recovering/Resolving]
  - Fatigue [Not Recovered/Not Resolved]
  - Hypertension [Not Recovered/Not Resolved]
  - Tooth extraction [Recovered/Resolved]
  - Decreased activity [Not Recovered/Not Resolved]
  - Off label use [Unknown]
  - Intentional product misuse [Unknown]
  - Product dose omission issue [Not Recovered/Not Resolved]

NARRATIVE: CASE EVENT DATE: 20220401
